FAERS Safety Report 8544312-9 (Version None)
Quarter: 2012Q3

REPORT INFORMATION
  Report Type: 
  Country: None (occurrence: None)
  Receive Date: 20120727
  Receipt Date: 20120724
  Transmission Date: 20120928
  Serious: No
  Sender: FDA-Public Use
  Company Number: US-PFIZER INC-2012017027

PATIENT
  Sex: Female

DRUGS (7)
  1. PROTONIX [Concomitant]
     Dosage: UNK
  2. AMLODIPINE [Concomitant]
     Dosage: UNK
  3. BENADRYL [Concomitant]
     Dosage: UNK
  4. TRAMADOL [Concomitant]
     Dosage: UNK
  5. PRAVASTATIN [Concomitant]
     Dosage: UNK
  6. CELEBREX [Suspect]
     Dosage: 200 MG, DAILY
     Route: 048
  7. ZYRTEC [Concomitant]
     Dosage: UNK

REACTIONS (3)
  - MOBILITY DECREASED [None]
  - BLOOD PRESSURE INCREASED [None]
  - ARTHRALGIA [None]
